FAERS Safety Report 4727403-X (Version None)
Quarter: 2005Q3

REPORT INFORMATION
  Report Type: 
  Country: None (occurrence: None)
  Receive Date: 20050727
  Receipt Date: 20050727
  Transmission Date: 20060218
  Serious: Yes (Death)
  Sender: FDA-Public Use
  Company Number: None

PATIENT
  Age: 65 Year
  Sex: Female
  Weight: 140.9 kg

DRUGS (30)
  1. ENOXAPARIN SODIUM [Suspect]
     Indication: CARDIOVERSION
     Dosage: 300 MG, 150MG Q1, SUBCUTAN
     Route: 058
  2. ENOXAPARIN SODIUM [Suspect]
     Indication: PROPHYLAXIS
     Dosage: 300 MG, 150MG Q1, SUBCUTAN
     Route: 058
  3. PHYTONADIONE [Concomitant]
  4. DIGOXIN [Concomitant]
  5. LORAZEPAM [Concomitant]
  6. METOPROLOL TARTRATE [Concomitant]
  7. COUMADIN [Concomitant]
  8. AMIODARONE [Concomitant]
  9. LACTULOSE [Concomitant]
  10. ROSIGLITAZONE [Concomitant]
  11. INSULIN NPH NOVOLIN HUMAN [Concomitant]
  12. FUROSEMIDE [Concomitant]
  13. MICONAZOLE NITRATE [Concomitant]
  14. DOCUSATE SOD [Concomitant]
  15. ENOXAPARIN SODIUM [Concomitant]
  16. CLONIDINE [Concomitant]
  17. OMEPRAZOLE [Concomitant]
  18. SIMVASTATIN [Concomitant]
  19. SENNOSIDES [Concomitant]
  20. CYCLOBENZAPRINE HCL [Concomitant]
  21. SPIRONOLACTONE [Concomitant]
  22. POTASSIUM CHLORIDE [Concomitant]
  23. LISINOPRIL [Concomitant]
  24. CALCIUM/VITAMIN D [Concomitant]
  25. ASPIRIN [Concomitant]
  26. DEXTROSE [Concomitant]
  27. INSULIN REG HUMAN/NOVOLIN [Concomitant]
  28. HUMULIN R [Concomitant]
  29. ONDANSETRON [Concomitant]
  30. DIGOXIN INJ, SOLN [Concomitant]

REACTIONS (1)
  - RETROPERITONEAL HAEMORRHAGE [None]
